FAERS Safety Report 6269132-X (Version None)
Quarter: 2009Q3

REPORT INFORMATION
  Report Type: 
  Country: None (occurrence: None)
  Receive Date: 20090715
  Receipt Date: 20090708
  Transmission Date: 20100115
  Serious: No
  Sender: FDA-Public Use
  Company Number: FR-EISAI INC.-E7273-00073-SPO-FR

PATIENT
  Age: 50 Year
  Sex: Male

DRUGS (1)
  1. TARGRETIN [Suspect]
     Dosage: 6 CAPSULES
     Route: 048

REACTIONS (1)
  - HYPOACUSIS [None]
